FAERS Safety Report 4589977-1 (Version None)
Quarter: 2005Q1

REPORT INFORMATION
  Report Type: 
  Country: None (occurrence: None)
  Receive Date: 20050125
  Receipt Date: 20040827
  Transmission Date: 20050727
  Serious: No
  Sender: FDA-Public Use
  Company Number: USA040773582

PATIENT
  Age: 80 Year
  Sex: Female
  Weight: 48 kg

DRUGS (1)
  1. FORTEO [Suspect]
     Indication: OSTEOPOROSIS
     Dosage: 20 UG/L DAY
     Dates: start: 20040531

REACTIONS (5)
  - DIARRHOEA [None]
  - EMOTIONAL DISTRESS [None]
  - PAIN [None]
  - RASH PAPULAR [None]
  - RIB FRACTURE [None]
